FAERS Safety Report 6573037-4 (Version None)
Quarter: 2010Q1

REPORT INFORMATION
  Report Type: 
  Country: None (occurrence: None)
  Receive Date: 20100208
  Receipt Date: 20091213
  Transmission Date: 20100710
  Serious: No
  Sender: FDA-Public Use
  Company Number: US-BAYER-200943740NA

PATIENT
  Age: 22 Year
  Sex: Female

DRUGS (1)
  1. MIRENA [Suspect]
     Indication: CONTRACEPTION
     Dosage: CONTINUOUS
     Route: 015
     Dates: start: 20070101

REACTIONS (5)
  - ABDOMINAL PAIN [None]
  - BACK PAIN [None]
  - MEDICAL DEVICE COMPLICATION [None]
  - MICTURITION DISORDER [None]
  - VAGINAL HAEMORRHAGE [None]
